FAERS Safety Report 18036343 (Version 1)
Quarter: 2020Q3

REPORT INFORMATION
  Report Type: Report from Study
  Country: ZA (occurrence: ZA)
  Receive Date: 20200717
  Receipt Date: 20200717
  Transmission Date: 20201103
  Serious: Yes (Congenital Anomaly)
  Sender: FDA-Public Use
  Company Number: ZA-GILEAD-2018-0357978

PATIENT
  Age: 0 Year
  Sex: Female
  Weight: 3.06 kg

DRUGS (6)
  1. VITAMIN C [Concomitant]
     Active Substance: ASCORBIC ACID
     Route: 064
  2. DOLUTEGRAVIR [Suspect]
     Active Substance: DOLUTEGRAVIR
     Indication: HIV INFECTION
     Dosage: 50 MG, QD
     Route: 064
     Dates: start: 20170328
  3. IRON FOLIC [Concomitant]
     Dosage: UNK
     Route: 064
  4. PYRIDOXINE [Concomitant]
     Active Substance: PYRIDOXINE
     Route: 064
  5. ISONIAZID. [Concomitant]
     Active Substance: ISONIAZID
     Route: 064
  6. EMTRICITABINE;TENOFOVIR DISOPROXIL FUMARATE [Suspect]
     Active Substance: EMTRICITABINE\TENOFOVIR DISOPROXIL FUMARATE
     Indication: HIV INFECTION
     Dosage: UNK
     Route: 064
     Dates: start: 20170328

REACTIONS (2)
  - Naevus flammeus [Unknown]
  - Foetal exposure during pregnancy [Recovered/Resolved]

NARRATIVE: CASE EVENT DATE: 20171104
